FAERS Safety Report 11227514 (Version 1)
Quarter: 2015Q2

REPORT INFORMATION
  Report Type: Spontaneous
  Country: CO (occurrence: CO)
  Receive Date: 20150630
  Receipt Date: 20150630
  Transmission Date: 20150821
  Serious: Yes (Hospitalization)
  Sender: FDA-Public Use
  Company Number: CO-JNJFOC-20150620206

PATIENT
  Age: 80 Year
  Sex: Female
  Weight: 42 kg

DRUGS (1)
  1. SIMPONI [Suspect]
     Active Substance: GOLIMUMAB
     Indication: RHEUMATOID ARTHRITIS
     Route: 058
     Dates: start: 20130814

REACTIONS (2)
  - Cough [Unknown]
  - Asphyxia [Unknown]

NARRATIVE: CASE EVENT DATE: 20150518
